FAERS Safety Report 8349418-5 (Version None)
Quarter: 2012Q2

REPORT INFORMATION
  Report Type: 
  Country: None (occurrence: None)
  Receive Date: 20120510
  Receipt Date: 20120504
  Transmission Date: 20120825
  Serious: Yes (Hospitalization)
  Sender: FDA-Public Use
  Company Number: US-B.I. PHARMACEUTICALS,INC./RIDGEFIELD-2012-BP-10162BP

PATIENT
  Sex: Male

DRUGS (15)
  1. PRADAXA [Suspect]
     Indication: ATRIAL FIBRILLATION
     Dosage: 300 MG
     Route: 048
     Dates: start: 20110502, end: 20120319
  2. FOLBIC [Concomitant]
     Indication: ANAEMIA
     Route: 048
  3. TYLENOL (CAPLET) [Concomitant]
     Route: 048
  4. BETAPACE [Concomitant]
     Indication: ATRIAL FLUTTER
     Dosage: 160 MG
     Route: 048
  5. CALCIUM CARBONATE [Concomitant]
     Indication: MINERAL SUPPLEMENTATION
     Dosage: 1500 MG
     Route: 048
  6. JANUVIA [Concomitant]
     Indication: DIABETES MELLITUS
     Dosage: 50 MG
     Route: 048
  7. PEPCID [Concomitant]
     Dosage: 40 MG
     Route: 048
  8. ZOCOR [Concomitant]
     Indication: HYPERLIPIDAEMIA
     Dosage: 20 MG
     Route: 048
  9. ASPIRIN [Concomitant]
     Dosage: 81 MG
     Route: 048
  10. DOCUSATE [Concomitant]
     Dosage: 200 MG
     Route: 048
  11. DIGOXIN [Concomitant]
     Indication: ARTERIOSCLEROSIS CORONARY ARTERY
     Dosage: 250 MCG
     Route: 048
  12. LASIX [Concomitant]
     Indication: HYPERTENSION
     Dosage: 40 MG
     Route: 048
  13. LEVITRA [Concomitant]
     Route: 048
  14. MAGNESIUM OXIDE [Concomitant]
     Indication: MINERAL SUPPLEMENTATION
     Dosage: 400 MG
     Route: 048
  15. QVAR 40 [Concomitant]
     Dosage: 160 MCG
     Route: 055

REACTIONS (2)
  - PERICARDIAL HAEMORRHAGE [None]
  - DYSPNOEA [None]
